FAERS Safety Report 7363649-2 (Version None)
Quarter: 2011Q1

REPORT INFORMATION
  Report Type: 
  Country: None (occurrence: None)
  Receive Date: 20110321
  Receipt Date: 20110317
  Transmission Date: 20110831
  Serious: Yes (Death, Hospitalization, Other)
  Sender: FDA-Public Use
  Company Number: GB-JNJFOC-20110101348

PATIENT
  Sex: Female

DRUGS (11)
  1. FELODIPINE [Concomitant]
     Indication: ILL-DEFINED DISORDER
     Route: 065
  2. LORAZEPAM [Concomitant]
     Indication: ILL-DEFINED DISORDER
     Route: 065
  3. ACETAMINOPHEN [Concomitant]
     Indication: ILL-DEFINED DISORDER
     Route: 065
  4. MIRTAZAPINE [Concomitant]
     Route: 065
  5. RISPERDAL [Suspect]
     Route: 048
  6. RISPERDAL [Suspect]
     Dosage: 1 MG IN THE MORNING AND 1.5 MG IN THE EVENING
     Route: 048
  7. RISPERDAL [Suspect]
     Indication: DEMENTIA
     Route: 048
  8. MIRTAZAPINE [Concomitant]
     Indication: ILL-DEFINED DISORDER
     Route: 065
  9. GLICLAZIDE [Concomitant]
     Indication: TYPE 2 DIABETES MELLITUS
     Route: 065
  10. HALOPERIDOL [Concomitant]
     Indication: AGITATION
     Route: 065
  11. ROSUVASTATIN [Concomitant]
     Indication: ILL-DEFINED DISORDER
     Route: 065

REACTIONS (20)
  - SEPSIS [None]
  - SOMNOLENCE [None]
  - BRADYCARDIA [None]
  - ASTHENIA [None]
  - DYSARTHRIA [None]
  - BONE MARROW FAILURE [None]
  - HYPOTENSION [None]
  - MUSCULOSKELETAL STIFFNESS [None]
  - PROTRUSION TONGUE [None]
  - DYSKINESIA [None]
  - CONDITION AGGRAVATED [None]
  - DYSPHAGIA [None]
  - COMMUNICATION DISORDER [None]
  - HYPOTHERMIA [None]
  - DELUSION [None]
  - FLUID INTAKE REDUCED [None]
  - CARDIAC FAILURE [None]
  - BLOOD PRESSURE DECREASED [None]
  - BODY TEMPERATURE DECREASED [None]
  - OFF LABEL USE [None]
